FAERS Safety Report 10329323 (Version 1)
Quarter: 2014Q3

REPORT INFORMATION
  Report Type: Spontaneous
  Country: US (occurrence: US)
  Receive Date: 20140721
  Receipt Date: 20140721
  Transmission Date: 20150326
  Serious: No
  Sender: FDA-Public Use
  Company Number: US-ASTRAZENECA-2014SE50205

PATIENT
  Age: 61 Year
  Sex: Female
  Weight: 65.8 kg

DRUGS (22)
  1. SEROQUEL XR [Suspect]
     Active Substance: QUETIAPINE FUMARATE
     Indication: BIPOLAR II DISORDER
     Dosage: 25 MG 1 1/2- 2 TABLETS DAILY (37.5MG)
     Route: 048
     Dates: start: 20140524
  2. SEROQUEL XR [Suspect]
     Active Substance: QUETIAPINE FUMARATE
     Indication: BIPOLAR II DISORDER
     Route: 048
     Dates: start: 20140611, end: 20140612
  3. SYNTHROID [Concomitant]
     Active Substance: LEVOTHYROXINE SODIUM
     Indication: GOITRE
     Route: 048
     Dates: start: 201311
  4. SEROQUEL XR [Suspect]
     Active Substance: QUETIAPINE FUMARATE
     Indication: BIPOLAR II DISORDER
     Route: 048
     Dates: start: 20140527
  5. HYDROCODONE CHLORPHENIRAM [Concomitant]
     Indication: BRONCHITIS
     Route: 048
     Dates: start: 20140531, end: 20140612
  6. LAMICTAL [Concomitant]
     Active Substance: LAMOTRIGINE
     Indication: DEPRESSION
     Route: 048
     Dates: start: 20140626
  7. MAGNESIUM [Concomitant]
     Active Substance: MAGNESIUM
     Indication: FIBROMYALGIA
     Route: 048
  8. SEROQUEL XR [Suspect]
     Active Substance: QUETIAPINE FUMARATE
     Indication: BIPOLAR II DISORDER
     Route: 048
     Dates: start: 20140525
  9. PROAIR HFA [Suspect]
     Active Substance: ALBUTEROL SULFATE
     Indication: DYSPNOEA
     Dosage: 1 OR 2 PUFFS PRN
     Route: 055
     Dates: start: 20140531
  10. FISH OIL [Concomitant]
     Active Substance: FISH OIL
     Indication: CARDIAC DISORDER
     Dosage: 50 MG 500 MG DAILY
     Route: 048
     Dates: start: 20140702
  11. SEROQUEL XR [Suspect]
     Active Substance: QUETIAPINE FUMARATE
     Indication: BIPOLAR II DISORDER
     Route: 048
     Dates: start: 20140516, end: 20140523
  12. SEROQUEL XR [Suspect]
     Active Substance: QUETIAPINE FUMARATE
     Indication: BIPOLAR II DISORDER
     Dosage: 50 MG UPTO 100 MG DAILY
     Route: 048
     Dates: start: 20140603, end: 20140610
  13. FISH OIL [Concomitant]
     Active Substance: FISH OIL
     Indication: DEMENTIA ALZHEIMER^S TYPE
     Dosage: 50 MG 500 MG DAILY
     Route: 048
     Dates: start: 20140702
  14. EPA AND DHA [Concomitant]
  15. SEROQUEL XR [Suspect]
     Active Substance: QUETIAPINE FUMARATE
     Indication: BIPOLAR II DISORDER
     Dosage: TOOK 12.5 MG
     Route: 048
     Dates: start: 20140528, end: 20140602
  16. AZITHROMYCIN [Concomitant]
     Active Substance: AZITHROMYCIN ANHYDROUS
     Indication: BRONCHITIS
     Dosage: UNK TSP DAILY
     Route: 048
     Dates: start: 20140531
  17. VITAMIN D [Concomitant]
     Active Substance: CHOLECALCIFEROL
     Indication: THYROID DISORDER
     Route: 048
     Dates: start: 201311
  18. SEROQUEL XR [Suspect]
     Active Substance: QUETIAPINE FUMARATE
     Indication: BIPOLAR II DISORDER
     Dosage: TOOK 37.5MG
     Route: 048
     Dates: start: 20140526
  19. SYNTHROID [Concomitant]
     Active Substance: LEVOTHYROXINE SODIUM
     Indication: HYPOTHYROIDISM
     Route: 048
     Dates: start: 201311
  20. SEROQUEL XR [Suspect]
     Active Substance: QUETIAPINE FUMARATE
     Indication: BIPOLAR II DISORDER
     Route: 048
     Dates: start: 20140614, end: 20140618
  21. SEROQUEL XR [Suspect]
     Active Substance: QUETIAPINE FUMARATE
     Indication: BIPOLAR II DISORDER
     Route: 048
     Dates: start: 20140619
  22. FISH OIL [Concomitant]
     Active Substance: FISH OIL
     Indication: DEPRESSION
     Dosage: 50 MG 500 MG DAILY
     Route: 048
     Dates: start: 20140702

REACTIONS (18)
  - Feeling abnormal [Unknown]
  - Weight decreased [Unknown]
  - Bronchitis [Unknown]
  - Adverse event [Unknown]
  - Fatigue [Unknown]
  - Increased appetite [Unknown]
  - Intentional product misuse [Unknown]
  - Nasal congestion [Unknown]
  - Somnolence [Unknown]
  - Dyspnoea [Unknown]
  - Dizziness [Unknown]
  - Drug ineffective [Unknown]
  - Off label use [Unknown]
  - Drug dose omission [Unknown]
  - Feeling jittery [Unknown]
  - Abdominal discomfort [Unknown]
  - Fatigue [Unknown]
  - Nightmare [Unknown]

NARRATIVE: CASE EVENT DATE: 20140517
